FAERS Safety Report 13918660 (Version 1)
Quarter: 2017Q3

REPORT INFORMATION
  Report Type: Spontaneous
  Country: GB (occurrence: GB)
  Receive Date: 20170829
  Receipt Date: 20170829
  Transmission Date: 20171127
  Serious: Yes (Other)
  Sender: FDA-Public Use
  Company Number: GB-MYLANLABS-2017M1053274

PATIENT
  Age: 82 Year
  Sex: Female
  Weight: 60 kg

DRUGS (13)
  1. CETIRIZINE [Concomitant]
     Active Substance: CETIRIZINE HYDROCHLORIDE
     Dates: start: 20170719
  2. INVITA D3 [Concomitant]
     Dosage: ADULT MAINTENANCE DOSE. TAKE THE CONTENTS OF ON...
     Dates: start: 20170308
  3. NYSTAN [Concomitant]
     Active Substance: NYSTATIN
     Indication: ORAL CANDIDIASIS
     Dates: start: 20170308
  4. BALNEUM                            /00103901/ [Concomitant]
     Dosage: APPLY AS DIRECTED.
     Dates: start: 20170726
  5. CLOBETASONE BUTYRATE [Concomitant]
     Active Substance: CLOBETASONE BUTYRATE
     Dosage: THINLY.
     Dates: start: 20170726
  6. OMEPRAZOLE. [Suspect]
     Active Substance: OMEPRAZOLE
     Indication: PRODUCT USED FOR UNKNOWN INDICATION
     Dates: start: 20170308
  7. BECLOMETASONE [Concomitant]
     Active Substance: BECLOMETHASONE DIPROPIONATE
     Dosage: 1 OR 2 PUFF(S) TWICE A DAY EACH NOSTRIL.
     Route: 045
     Dates: start: 20170308
  8. EVACAL D3 [Concomitant]
     Dates: start: 20170308
  9. FEXOFENADINE [Concomitant]
     Active Substance: FEXOFENADINE\FEXOFENADINE HYDROCHLORIDE
     Dates: start: 20170804
  10. LIQUIFILM TEARS [Concomitant]
     Active Substance: POLYVINYL ALCOHOL
     Dosage: 2 DROPS TO BOTH EYES TWICE DAILY
     Route: 050
     Dates: start: 20170308
  11. ESTRADIOL. [Concomitant]
     Active Substance: ESTRADIOL
     Dosage: INSERT HIGH INTO THE VAGINA
     Route: 067
     Dates: start: 20170505
  12. ALENDRONIC ACID [Concomitant]
     Active Substance: ALENDRONIC ACID
     Dosage: FOLLOW INSTRUCTIONS CAREFULLY.
     Dates: start: 20170308
  13. IBUPROFEN. [Concomitant]
     Active Substance: IBUPROFEN
     Dosage: UP TO 3 TIMES A DAY WITH FOOD.
     Dates: start: 20170308

REACTIONS (2)
  - Acute cutaneous lupus erythematosus [Unknown]
  - Rash macular [Recovering/Resolving]

NARRATIVE: CASE EVENT DATE: 20170810
